FAERS Safety Report 8623105-8 (Version None)
Quarter: 2012Q3

REPORT INFORMATION
  Report Type: 
  Country: None (occurrence: None)
  Receive Date: 20120810
  Receipt Date: 20120801
  Transmission Date: 20120928
  Serious: Yes (Other)
  Sender: FDA-Public Use
  Company Number: 2012PV000048

PATIENT

DRUGS (1)
  1. DEPOCYT [Suspect]
     Dosage: INTH
     Route: 025

REACTIONS (1)
  - CNS VENTRICULITIS [None]
